FAERS Safety Report 9202469 (Version 1)
Quarter: 2013Q2

REPORT INFORMATION
  Report Type: Spontaneous
  Country: US (occurrence: US)
  Receive Date: 20130401
  Receipt Date: 20130401
  Transmission Date: 20140414
  Serious: Yes (Hospitalization, Other)
  Sender: FDA-Public Use
  Company Number: GXBR2013US000773

PATIENT
  Age: 69 Year
  Sex: Male
  Weight: 89.34 kg

DRUGS (8)
  1. ENOXAPARIN SODIUM [Suspect]
     Indication: PULMONARY EMBOLISM
     Dosage: 90 MG, BID
     Route: 058
     Dates: start: 20130116, end: 20130224
  2. ENOXAPARIN SODIUM [Suspect]
     Dosage: 40 MG, UNK
     Route: 058
     Dates: start: 20130221, end: 20130222
  3. ENOXAPARIN SODIUM [Suspect]
     Dosage: 1 MG/KG, UNK
     Dates: start: 20130223, end: 20130226
  4. LOVENOX [Suspect]
     Indication: THROMBOSIS
     Dosage: UNK MG, BID
     Dates: start: 20130120, end: 20130220
  5. SENNA-S (DOCUSATE SODIUM/SENNA ALEXANDRINA) [Concomitant]
     Dosage: 2 TABLETS BID PRN
     Route: 048
  6. PROCHLORPERAZINE [Concomitant]
     Indication: NAUSEA
     Dosage: 10 MG, Q6H PRN
  7. ONDANSETRON [Concomitant]
     Indication: NAUSEA
     Dosage: 4 MG, Q8H PRN
     Route: 048
  8. TIOTROPIUM [Concomitant]
     Dosage: 18 UG, QD

REACTIONS (10)
  - Pneumonia [Unknown]
  - Pulmonary embolism [Recovering/Resolving]
  - Pyrexia [Recovering/Resolving]
  - Tachypnoea [Recovering/Resolving]
  - Tachycardia [Recovering/Resolving]
  - Hypoxia [Recovering/Resolving]
  - Deep vein thrombosis [Recovering/Resolving]
  - Pleural effusion [Unknown]
  - Pneumonitis [Unknown]
  - Flank pain [Unknown]
